FAERS Safety Report 13982764 (Version 1)
Quarter: 2017Q3

REPORT INFORMATION
  Report Type: Spontaneous
  Country: US (occurrence: US)
  Receive Date: 20170918
  Receipt Date: 20170918
  Transmission Date: 20171128
  Serious: Yes (Other)
  Sender: FDA-Public Use
  Company Number: None

PATIENT
  Age: 56 Year
  Sex: Female
  Weight: 73.35 kg

DRUGS (2)
  1. SECUKINUMAB [Suspect]
     Active Substance: SECUKINUMAB
     Indication: PSORIASIS
     Dosage: OTHER FREQUENCY:WEEKLY;?STRENGTH - INJECTION AN - AS NECESSARY
     Route: 058
     Dates: start: 20170501, end: 20170912
  2. METFORMIN [Concomitant]
     Active Substance: METFORMIN HYDROCHLORIDE

REACTIONS (2)
  - Oropharyngeal candidiasis [None]
  - Oral candidiasis [None]

NARRATIVE: CASE EVENT DATE: 20170724
